FAERS Safety Report 25325150 (Version 1)
Quarter: 2025Q2

REPORT INFORMATION
  Report Type: Spontaneous
  Country: FR (occurrence: FR)
  Receive Date: 20250516
  Receipt Date: 20250516
  Transmission Date: 20250716
  Serious: Yes (Other)
  Sender: TAKEDA
  Company Number: FR-TAKEDA-2025TUS042099

PATIENT
  Age: 23 Month
  Sex: Male

DRUGS (7)
  1. HUMAN IMMUNOGLOBULIN G [Suspect]
     Active Substance: HUMAN IMMUNOGLOBULIN G
     Indication: Kawasaki^s disease
  2. INFLIXIMAB [Suspect]
     Active Substance: INFLIXIMAB
     Indication: Kawasaki^s disease
  3. ANAKINRA [Concomitant]
     Active Substance: ANAKINRA
     Dosage: 4.5 MILLIGRAM/KILOGRAM, QD
  4. CANAKINUMAB [Concomitant]
     Active Substance: CANAKINUMAB
     Dosage: 4 MILLIGRAM/KILOGRAM, Q4WEEKS
  5. CYCLOSPORINE [Concomitant]
     Active Substance: CYCLOSPORINE
     Dosage: 5 MILLIGRAM/KILOGRAM, QD
  6. EMAPALUMAB [Concomitant]
     Active Substance: EMAPALUMAB
  7. RUXOLITINIB [Concomitant]
     Active Substance: RUXOLITINIB

REACTIONS (1)
  - Drug ineffective [Unknown]
